FAERS Safety Report 11784618 (Version 2)
Quarter: 2015Q4

REPORT INFORMATION
  Report Type: Spontaneous
  Country: ES (occurrence: ES)
  Receive Date: 20151130
  Receipt Date: 20151218
  Transmission Date: 20160305
  Serious: Yes (Other)
  Sender: FDA-Public Use
  Company Number: ES-SUN PHARMACEUTICAL INDUSTRIES LTD-2015R1-106691

PATIENT
  Sex: Female

DRUGS (2)
  1. COTRIMOXAZOLE [Suspect]
     Active Substance: SULFAMETHOXAZOLE\TRIMETHOPRIM
     Indication: PROPHYLAXIS
     Dosage: ONE EVERY TWELVE HOURS DURING 1 WEEK
     Route: 065
  2. CLADRIBINE. [Concomitant]
     Active Substance: CLADRIBINE
     Indication: SYSTEMIC MASTOCYTOSIS
     Dosage: UNK
     Route: 065

REACTIONS (7)
  - Flushing [Unknown]
  - Cough [Unknown]
  - Tachycardia [Unknown]
  - Type I hypersensitivity [Unknown]
  - Diarrhoea [Unknown]
  - Body temperature increased [Unknown]
  - Vomiting [Unknown]
